FAERS Safety Report 4853104-3 (Version None)
Quarter: 2005Q4

REPORT INFORMATION
  Report Type: 
  Country: None (occurrence: None)
  Receive Date: 20051212
  Receipt Date: 20051128
  Transmission Date: 20060501
  Serious: Yes (Other)
  Sender: FDA-Public Use
  Company Number: HQWYE913208DEC05

PATIENT
  Age: 35 Year
  Sex: Female

DRUGS (1)
  1. EFFEXOR [Suspect]
     Indication: DEPRESSION
     Dates: end: 20030101

REACTIONS (6)
  - ALPHA 1 FOETOPROTEIN DECREASED [None]
  - DRUG EXPOSURE DURING PREGNANCY [None]
  - INTRA-UTERINE DEATH [None]
  - OLIGOHYDRAMNIOS [None]
  - ULTRASOUND ANTENATAL SCREEN ABNORMAL [None]
  - UNINTENDED PREGNANCY [None]
